FAERS Safety Report 10707315 (Version 1)
Quarter: 2015Q1

REPORT INFORMATION
  Report Type: Spontaneous
  Country: US (occurrence: None)
  Receive Date: 20150112
  Receipt Date: 20150112
  Transmission Date: 20150721
  Serious: Yes (Other)
  Sender: FDA-Public Use
  Company Number: None

PATIENT
  Age: 32 Year
  Sex: Male
  Weight: 69.85 kg

DRUGS (4)
  1. SARAPIN [Suspect]
     Active Substance: SARRACENIA PURPUREA
  2. DEPO-MEDROL [Suspect]
     Active Substance: METHYLPREDNISOLONE ACETATE
  3. TRAZODONE [Concomitant]
     Active Substance: TRAZODONE HYDROCHLORIDE
  4. MARCAINE [Suspect]
     Active Substance: BUPIVACAINE HYDROCHLORIDE

REACTIONS (10)
  - Vomiting [None]
  - Urine odour abnormal [None]
  - Dizziness [None]
  - Abdominal pain [None]
  - Nausea [None]
  - Diarrhoea [None]
  - Bone pain [None]
  - Chills [None]
  - Liver function test abnormal [None]
  - Arthralgia [None]

NARRATIVE: CASE EVENT DATE: 20141112
